FAERS Safety Report 9580403 (Version 1)
Quarter: 2013Q3

REPORT INFORMATION
  Report Type: Spontaneous
  Country: US (occurrence: None)
  Receive Date: 20130916
  Receipt Date: 20130916
  Transmission Date: 20140515
  Serious: Yes (Other)
  Sender: FDA-Public Use
  Company Number: JPI-P-032168

PATIENT
  Age: 27 Year
  Sex: Female
  Weight: 90.72 kg

DRUGS (3)
  1. XYREM [Suspect]
     Indication: CATAPLEXY
     Route: 048
     Dates: start: 20090609
  2. PROVIGIL [Concomitant]
  3. CLONAZEPAM [Concomitant]

REACTIONS (2)
  - Lower limb fracture [None]
  - Fall [None]
